FAERS Safety Report 5486732-5 (Version None)
Quarter: 2007Q4

REPORT INFORMATION
  Report Type: 
  Country: None (occurrence: None)
  Receive Date: 20071016
  Receipt Date: 20071015
  Transmission Date: 20080405
  Serious: Yes (Hospitalization)
  Sender: FDA-Public Use
  Company Number: A0687126A

PATIENT
  Age: 56 Year
  Sex: Female

DRUGS (3)
  1. ALLI [Suspect]
     Indication: DRUG USE FOR UNKNOWN INDICATION
     Route: 048
     Dates: start: 20070708, end: 20070914
  2. CELEBREX [Concomitant]
     Dosage: 400MG PER DAY
  3. PRILOSEC [Concomitant]
     Dosage: 20MG AS REQUIRED

REACTIONS (3)
  - BLOOD IRON DECREASED [None]
  - FULL BLOOD COUNT DECREASED [None]
  - OVARIAN NEOPLASM [None]
